FAERS Safety Report 5615318-4 (Version None)
Quarter: 2008Q1

REPORT INFORMATION
  Report Type: 
  Country: None (occurrence: None)
  Receive Date: 20080206
  Receipt Date: 20080130
  Transmission Date: 20080703
  Serious: Yes (Hospitalization)
  Sender: FDA-Public Use
  Company Number: DE-JNJFOC-20070107573

PATIENT
  Age: 5 Decade
  Sex: Female

DRUGS (22)
  1. REMICADE [Suspect]
     Indication: RHEUMATOID ARTHRITIS
     Route: 042
  2. ETANERCEPT [Concomitant]
     Route: 065
  3. ETANERCEPT [Concomitant]
     Route: 065
  4. ETANERCEPT [Concomitant]
     Route: 065
  5. MTX [Concomitant]
     Route: 065
  6. MTX [Concomitant]
     Route: 065
  7. MTX [Concomitant]
     Route: 065
  8. MTX [Concomitant]
     Route: 065
  9. MTX [Concomitant]
     Route: 065
  10. MTX [Concomitant]
     Route: 065
  11. MTX [Concomitant]
     Route: 065
  12. MTX [Concomitant]
     Route: 065
  13. MTX [Concomitant]
     Route: 065
  14. MTX [Concomitant]
     Route: 065
  15. MTX [Concomitant]
     Route: 065
  16. LEFLUNOMIDE [Concomitant]
     Route: 065
  17. LEFLUNOMIDE [Concomitant]
     Route: 065
  18. LEFLUNOMIDE [Concomitant]
     Route: 065
  19. LEFLUNOMIDE [Concomitant]
     Route: 065
  20. LEFLUNOMIDE [Concomitant]
     Route: 065
  21. LEFLUNOMIDE [Concomitant]
     Route: 065
  22. LEFLUNOMIDE [Concomitant]
     Route: 065

REACTIONS (2)
  - ARTHRODESIS [None]
  - JOINT ARTHROPLASTY [None]
